FAERS Safety Report 23747029 (Version 1)
Quarter: 2024Q2

REPORT INFORMATION
  Report Type: Spontaneous
  Country: US (occurrence: US)
  Receive Date: 20240416
  Receipt Date: 20240416
  Transmission Date: 20240716
  Serious: Yes (Hospitalization, Other)
  Sender: FDA-Public Use
  Company Number: US-SENTISSAG-2024SAGLIT-00009

PATIENT
  Age: 38 Year
  Sex: Female

DRUGS (5)
  1. LIDOCAINE HYDROCHLORIDE [Suspect]
     Active Substance: LIDOCAINE HYDROCHLORIDE
     Indication: Postoperative analgesia
     Route: 040
  2. EPINEPHRINE [Concomitant]
     Active Substance: EPINEPHRINE
     Dosage: UG/KG/MIN
  3. EPINEPHRINE [Concomitant]
     Active Substance: EPINEPHRINE
     Dosage: UG/KG/MIN
  4. NITRIC OXIDE [Concomitant]
     Active Substance: NITRIC OXIDE
  5. NITRIC OXIDE [Concomitant]
     Active Substance: NITRIC OXIDE

REACTIONS (1)
  - Local anaesthetic systemic toxicity [Recovered/Resolved]
